FAERS Safety Report 20594753 (Version 1)
Quarter: 2022Q1

REPORT INFORMATION
  Report Type: Spontaneous
  Country: BR (occurrence: BR)
  Receive Date: 20220315
  Receipt Date: 20220315
  Transmission Date: 20220423
  Serious: Yes (Hospitalization, Other)
  Sender: FDA-Public Use
  Company Number: BR-USP-000349

PATIENT
  Age: 51 Year
  Sex: Male

DRUGS (5)
  1. NITROGLYCERIN [Suspect]
     Active Substance: NITROGLYCERIN
     Indication: Peripheral ischaemia
     Route: 065
  2. ENOXAPARIN [Suspect]
     Active Substance: ENOXAPARIN
     Indication: Peripheral ischaemia
     Route: 065
  3. HEPARIN [Suspect]
     Active Substance: HEPARIN SODIUM
     Indication: Peripheral ischaemia
     Route: 065
  4. ALPROSTADIL [Suspect]
     Active Substance: ALPROSTADIL
     Indication: Peripheral ischaemia
  5. CORTICOSTEROID NOS [Suspect]
     Active Substance: CORTICOSTEROID NOS
     Indication: Antiinflammatory therapy
     Route: 065

REACTIONS (8)
  - Condition aggravated [Unknown]
  - Cyanosis [Unknown]
  - Rhabdomyolysis [Unknown]
  - Compartment syndrome [Unknown]
  - Disease progression [Unknown]
  - Necrosis [Unknown]
  - Renal failure [Recovered/Resolved]
  - Product use in unapproved indication [Unknown]
